FAERS Safety Report 7981738-6 (Version None)
Quarter: 2011Q4

REPORT INFORMATION
  Report Type: 
  Country: None (occurrence: None)
  Receive Date: 20111215
  Receipt Date: 20111210
  Transmission Date: 20120403
  Serious: No
  Sender: FDA-Public Use
  Company Number: US-B.I. PHARMACEUTICALS,INC./RIDGEFIELD-2011-BP-27864BP

PATIENT
  Age: 83 Year
  Sex: Female

DRUGS (4)
  1. CALCIUM [Concomitant]
     Indication: SUPPLEMENTATION THERAPY
  2. COD LIVER OIL [Concomitant]
     Indication: SUPPLEMENTATION THERAPY
  3. PRADAXA [Suspect]
     Indication: ATRIAL FIBRILLATION
     Dosage: 300 MG
     Route: 048
     Dates: start: 20111201
  4. UNKNOWN MEDICATION [Concomitant]
     Indication: HYPERTENSION

REACTIONS (4)
  - RASH MACULAR [None]
  - PRURITUS [None]
  - SWELLING [None]
  - DYSPHAGIA [None]
